FAERS Safety Report 5406479-0 (Version None)
Quarter: 2007Q3

REPORT INFORMATION
  Report Type: 
  Country: None (occurrence: None)
  Receive Date: 20070806
  Receipt Date: 20070731
  Transmission Date: 20080115
  Serious: Yes (Death, Other)
  Sender: FDA-Public Use
  Company Number: JP-ELI_LILLY_AND_COMPANY-JP200708000881

PATIENT
  Age: 94 Year
  Sex: Female

DRUGS (3)
  1. RALOXIFENE HYDROCHLORIDE [Suspect]
     Indication: OSTEOPOROSIS POSTMENOPAUSAL
     Dosage: 60 MG, DAILY (1/D)
     Route: 048
     Dates: start: 20041225, end: 20060216
  2. GASMOTIN [Concomitant]
     Indication: GASTRITIS
     Dosage: 15 MG, DAILY (1/D)
     Route: 048
     Dates: start: 20000108, end: 20060216
  3. TRANCOLON [Concomitant]
     Indication: ENTEROCOLITIS
     Dosage: 22.5 MG, DAILY (1/D)
     Route: 048
     Dates: start: 20000108, end: 20060216

REACTIONS (2)
  - INJURY [None]
  - PNEUMONIA [None]
